FAERS Safety Report 16093732 (Version 1)
Quarter: 2019Q1

REPORT INFORMATION
  Report Type: Spontaneous
  Country: CZ (occurrence: CZ)
  Receive Date: 20190320
  Receipt Date: 20190320
  Transmission Date: 20190418
  Serious: Yes (Other)
  Sender: FDA-Public Use
  Company Number: CZ-ACCORD-114148

PATIENT
  Age: 76 Year
  Sex: Female

DRUGS (8)
  1. PIOGLITAZONE ACCORD [Suspect]
     Active Substance: PIOGLITAZONE
     Indication: DIABETES MELLITUS
     Dosage: 1X1 TBL
     Route: 048
     Dates: start: 20180515, end: 20180515
  2. FURON [Concomitant]
     Active Substance: FUROSEMIDE
  3. LETROX [Concomitant]
     Active Substance: LEVOTHYROXINE SODIUM
  4. GLUCOPHAGE [Concomitant]
     Active Substance: METFORMIN HYDROCHLORIDE
  5. APOTIC [Concomitant]
  6. ORTANOL [Concomitant]
     Active Substance: OMEPRAZOLE
  7. LEVEMIR [Concomitant]
     Active Substance: INSULIN DETEMIR
  8. CONCOR COR [Concomitant]
     Active Substance: BISOPROLOL FUMARATE

REACTIONS (2)
  - Vision blurred [Recovered/Resolved]
  - Pruritus [Recovered/Resolved]

NARRATIVE: CASE EVENT DATE: 20180515
